FAERS Safety Report 5840290-1 (Version None)
Quarter: 2008Q3

REPORT INFORMATION
  Report Type: 
  Country: None (occurrence: None)
  Receive Date: 20080807
  Receipt Date: 20080807
  Transmission Date: 20090109
  Serious: No
  Sender: FDA-Public Use
  Company Number: None

PATIENT

DRUGS (1)
  1. POLYETHYLENE GLYCOL -PEG- 3350, NEXGEN PHARMA, INC [Suspect]
     Indication: CONSTIPATION
     Dosage: 17GM IN 8OZ WATER/DAY

REACTIONS (4)
  - DYSGEUSIA [None]
  - OROPHARYNGEAL PAIN [None]
  - PHARMACEUTICAL PRODUCT COMPLAINT [None]
  - PHARYNGEAL OEDEMA [None]
